FAERS Safety Report 7662651-0 (Version None)
Quarter: 2011Q3

REPORT INFORMATION
  Report Type: 
  Country: None (occurrence: None)
  Receive Date: 20110805
  Receipt Date: 20100824
  Transmission Date: 20111222
  Serious: No
  Sender: FDA-Public Use
  Company Number: US-ABBOTT-10P-163-0666036-00

PATIENT
  Sex: Male
  Weight: 76.272 kg

DRUGS (4)
  1. NIASPAN [Suspect]
     Indication: HIGH DENSITY LIPOPROTEIN DECREASED
  2. ASPIRIN [Concomitant]
  3. ALLEGRA D 24 HOUR [Concomitant]
  4. LIPITOR [Concomitant]

REACTIONS (1)
  - DIARRHOEA [None]
